FAERS Safety Report 6832655-6 (Version None)
Quarter: 2010Q3

REPORT INFORMATION
  Report Type: 
  Country: None (occurrence: None)
  Receive Date: 20100712
  Receipt Date: 20070325
  Transmission Date: 20110219
  Serious: No
  Sender: FDA-Public Use
  Company Number: US-PFIZER INC-2007020287

PATIENT
  Sex: Female
  Weight: 63.05 kg

DRUGS (9)
  1. CHANTIX [Suspect]
     Indication: SMOKING CESSATION THERAPY
     Route: 048
     Dates: start: 20070309
  2. NICOTINE [Concomitant]
     Dates: end: 20070301
  3. LAMICTAL [Concomitant]
  4. ZYPREXA [Concomitant]
  5. KLONOPIN [Concomitant]
  6. ROZEREM [Concomitant]
  7. NORVASC [Concomitant]
     Indication: HYPERTENSION
  8. ATENOLOL [Concomitant]
     Indication: HYPERTENSION
  9. LISINOPRIL [Concomitant]
     Indication: HYPERTENSION

REACTIONS (5)
  - DEPRESSION [None]
  - DISORIENTATION [None]
  - DISTURBANCE IN ATTENTION [None]
  - INSOMNIA [None]
  - NAUSEA [None]
